FAERS Safety Report 9118234 (Version 1)
Quarter: 2013Q1

REPORT INFORMATION
  Report Type: Spontaneous
  Country: US (occurrence: US)
  Receive Date: 20130128
  Receipt Date: 20130128
  Transmission Date: 20140127
  Serious: No
  Sender: FDA-Public Use
  Company Number: US-PFIZER INC-2013030735

PATIENT
  Age: 9 Month
  Sex: Female
  Weight: 9 kg

DRUGS (1)
  1. CHILDRENS ADVIL [Suspect]
     Indication: PHARYNGITIS STREPTOCOCCAL
     Dosage: UNK
     Dates: start: 201212

REACTIONS (2)
  - Pharyngeal erythema [Unknown]
  - Screaming [Unknown]
